FAERS Safety Report 4348036-3 (Version None)
Quarter: 2004Q2

REPORT INFORMATION
  Report Type: 
  Country: None (occurrence: None)
  Receive Date: 20040422
  Receipt Date: 20040402
  Transmission Date: 20050107
  Serious: Yes (Hospitalization, Other)
  Sender: FDA-Public Use
  Company Number: USA040258568

PATIENT
  Age: 78 Year
  Sex: Male
  Weight: 110 kg

DRUGS (6)
  1. CIALIS [Suspect]
     Indication: ERECTILE DYSFUNCTION
     Dosage: 10 MG
     Dates: start: 20040630
  2. AVANDIA [Concomitant]
  3. GLUCOTROL XL [Concomitant]
  4. TRIAMTERENE AND HYDROCHLOROTHIAZIDE ^HARRIS^ [Concomitant]
  5. PRINIVIL [Concomitant]
  6. SEREVENT [Concomitant]

REACTIONS (5)
  - ASTHENIA [None]
  - CORONARY ARTERY STENOSIS [None]
  - FATIGUE [None]
  - MYOCARDIAL INFARCTION [None]
  - PULMONARY OEDEMA [None]
